FAERS Safety Report 9191214 (Version 2)
Quarter: 2013Q2

REPORT INFORMATION
  Report Type: Report from Study
  Country: IT (occurrence: IT)
  Receive Date: 20130326
  Receipt Date: 20130408
  Transmission Date: 20140414
  Serious: Yes (Other)
  Sender: FDA-Public Use
  Company Number: IT-BAYER-2013-033572

PATIENT
  Age: 54 Year
  Sex: Male
  Weight: 85 kg

DRUGS (7)
  1. SORAFENIB (RAF KINASE INHIBITOR) [Suspect]
     Indication: HEPATOCELLULAR CARCINOMA
     Dosage: 800 MG DAILY
     Route: 048
     Dates: start: 20121016
  2. LANSOPRAZOLE [Concomitant]
     Indication: PORTAL HYPERTENSIVE GASTROPATHY
     Dosage: TOTAL DAILY DOSE 30 MG
     Route: 048
     Dates: start: 20111008
  3. PROPRANOLOL [Concomitant]
     Indication: VARICES OESOPHAGEAL
     Dosage: TOTAL DAILY DOSE 40 MG
     Route: 048
     Dates: start: 20111008
  4. CANRENONE [Concomitant]
     Indication: ASCITES
     Dosage: TOTAL DAILY DOSE 100 MG
     Route: 048
     Dates: start: 20111008
  5. FUROSEMIDE [Concomitant]
     Indication: ASCITES
     Dosage: TOTAL DAILY DOSE 25 MG
     Route: 048
     Dates: start: 20111008
  6. ENTECAVIR [Concomitant]
     Dosage: TOTAL DAILY DOSE 0.5 MG
     Route: 048
     Dates: start: 20111008
  7. LACTULOSE [Concomitant]
     Dosage: TOTAL DAILY DOSE 45 ML
     Route: 048
     Dates: start: 20111017

REACTIONS (1)
  - Malignant melanoma [Not Recovered/Not Resolved]
